FAERS Safety Report 8008868 (Version 3)
Quarter: 2013Q3

REPORT INFORMATION
  Report Type: Report from Study
  Country: JP (occurrence: JP)
  Receive Date: 20110624
  Receipt Date: 20130821
  Transmission Date: 20140515
  Serious: Yes (Hospitalization)
  Sender: FDA-Public Use
  Company Number: JP-PFIZER INC-2011134676

PATIENT
  Age: 27 Year
  Sex: Male

DRUGS (15)
  1. GABAPENTIN [Suspect]
     Indication: EPILEPSY
     Dosage: 200 MG, 2X/DAY
     Route: 048
     Dates: start: 20090828, end: 20090903
  2. GABAPENTIN [Suspect]
     Dosage: 200 MG, 3X/DAY
     Route: 048
     Dates: start: 20090904, end: 20090910
  3. GABAPENTIN [Suspect]
     Dosage: 300 MG, 3X/DAY
     Route: 048
     Dates: start: 20090911, end: 20090917
  4. GABAPENTIN [Suspect]
     Dosage: 400 MG, 3X/DAY
     Route: 048
     Dates: start: 20090918, end: 20090924
  5. GABAPENTIN [Suspect]
     Dosage: 500 MG, 3X/DAY
     Route: 048
     Dates: start: 20090925, end: 20091022
  6. ALEVIATIN [Concomitant]
     Indication: EPILEPSY
     Dosage: 100 MG, 2X/DAY
     Route: 048
  7. HYDANTOL [Concomitant]
     Indication: EPILEPSY
     Dosage: 31.25 MG, 2X/DAY
     Route: 048
     Dates: end: 20090903
  8. HYDANTOL [Concomitant]
     Dosage: 25 MG, 2X/DAY
     Route: 048
     Dates: start: 20090904, end: 20090910
  9. HYDANTOL [Concomitant]
     Dosage: 18.75 MG, 2X/DAY
     Route: 048
     Dates: start: 20090911, end: 20090924
  10. HYDANTOL [Concomitant]
     Dosage: 12.5 MG, 2X/DAY
     Route: 048
     Dates: start: 20090925
  11. RISPERDAL [Concomitant]
     Dosage: 1 MG, 2X/DAY
     Route: 048
  12. SEROQUEL [Concomitant]
     Dosage: 112.5 MG, 2X/DAY
     Route: 048
     Dates: end: 20091008
  13. SEROQUEL [Concomitant]
     Dosage: 150 MG, 2X/DAY
     Route: 048
     Dates: start: 20091009
  14. ARTANE [Concomitant]
     Dosage: 2 MG, 3X/DAY
     Route: 048
  15. MAGMITT [Concomitant]
     Dosage: 250 MG, 3X/DAY
     Route: 048

REACTIONS (1)
  - Convulsion [Recovered/Resolved]
